FAERS Safety Report 4314852-7 (Version None)
Quarter: 2004Q1

REPORT INFORMATION
  Report Type: 
  Country: None (occurrence: None)
  Receive Date: 20040308
  Receipt Date: 20040302
  Transmission Date: 20041129
  Serious: Yes (Hospitalization)
  Sender: FDA-Public Use
  Company Number: STA-AE-04-MTX-085

PATIENT
  Age: 78 Year
  Sex: Male

DRUGS (9)
  1. METHOTREXATE [Suspect]
     Indication: RHEUMATOID ARTHRITIS
     Dosage: 10 MG 1X PER 1 WK, ORAL
     Route: 048
     Dates: start: 20030101, end: 20031229
  2. TAVANIC (LEVOFLOXACIN) [Concomitant]
  3. SECTRAL [Concomitant]
  4. KALEROID (POTASSIUM CHLORIDE) [Concomitant]
  5. FELODIPINE [Concomitant]
  6. KARDEGIC (ACETYLSALICYLATE LYSINE) [Concomitant]
  7. PRAVASTATIN SODIUM [Concomitant]
  8. ALPRESS (PRAZOSIN HYDROCHLORIDE) [Concomitant]
  9. JOSIR (TAMSULOSIN HYDROCHLORIDE) [Concomitant]

REACTIONS (7)
  - GASTROINTESTINAL ULCER HAEMORRHAGE [None]
  - MOUTH HAEMORRHAGE [None]
  - MOUTH ULCERATION [None]
  - OESOPHAGEAL ULCER HAEMORRHAGE [None]
  - PANCYTOPENIA [None]
  - PROSTATITIS [None]
  - PYREXIA [None]
